FAERS Safety Report 4939213-9 (Version None)
Quarter: 2006Q1

REPORT INFORMATION
  Report Type: 
  Country: None (occurrence: None)
  Receive Date: 20060306
  Receipt Date: 20060223
  Transmission Date: 20060701
  Serious: Yes (Death)
  Sender: FDA-Public Use
  Company Number: 13577

PATIENT
  Age: 66 Year
  Sex: Male

DRUGS (4)
  1. VINCRISTINE [Suspect]
  2. CYCLOPHOSPHAMIDE [Suspect]
  3. PREDNISOLONE [Suspect]
  4. RITUXIMAB [Suspect]

REACTIONS (3)
  - METASTASES TO LIVER [None]
  - PERIPHERAL T-CELL LYMPHOMA UNSPECIFIED [None]
  - THERAPY NON-RESPONDER [None]
